FAERS Safety Report 16925083 (Version 3)
Quarter: 2019Q4

REPORT INFORMATION
  Report Type: Spontaneous
  Country: US (occurrence: US)
  Receive Date: 20191016
  Receipt Date: 20191127
  Transmission Date: 20200122
  Serious: No
  Sender: FDA-Public Use
  Company Number: US-PFIZER INC-2019447682

PATIENT
  Age: 58 Year
  Sex: Female
  Weight: 37.65 kg

DRUGS (3)
  1. LORBRENA [Suspect]
     Active Substance: LORLATINIB
     Indication: NON-SMALL CELL LUNG CANCER METASTATIC
     Dosage: 100 MG, 1X/DAY (11:30 PM OR BEFORE MIDNIGHT)
     Route: 048
     Dates: start: 20191011
  2. ELIQUIS [Concomitant]
     Active Substance: APIXABAN
     Indication: DEEP VEIN THROMBOSIS
     Dosage: 5 MG, 2X/DAY (9 AM + 9 PM)
  3. LEVETIRACETAM. [Concomitant]
     Active Substance: LEVETIRACETAM
     Indication: SEIZURE
     Dosage: 500 MG, 2X/DAY(9AM AND 9PM )

REACTIONS (6)
  - Migraine [Not Recovered/Not Resolved]
  - Nausea [Unknown]
  - Vomiting [Unknown]
  - Visual impairment [Unknown]
  - Oedema peripheral [Unknown]
  - Abdominal distension [Unknown]

NARRATIVE: CASE EVENT DATE: 20191011
